FAERS Safety Report 21491427 (Version 2)
Quarter: 2023Q1

REPORT INFORMATION
  Report Type: Spontaneous
  Country: US (occurrence: US)
  Receive Date: 20221021
  Receipt Date: 20230208
  Transmission Date: 20230417
  Serious: No
  Sender: FDA-Public Use
  Company Number: US-PFIZER INC-PV202200086742

PATIENT
  Age: 66 Year
  Sex: Female

DRUGS (2)
  1. IBRANCE [Suspect]
     Active Substance: PALBOCICLIB
     Indication: Breast cancer metastatic
     Dosage: 75 MG, ONCE A DAY FOR 21 DAYS, THEN OFF FOR A WEEK
     Dates: start: 202203
  2. FULVESTRANT [Concomitant]
     Active Substance: FULVESTRANT
     Dosage: 2 INJECTIONS, ONCE A MONTH

REACTIONS (1)
  - Neoplasm progression [Unknown]
